FAERS Safety Report 9150051 (Version 1)
Quarter: 2013Q1

REPORT INFORMATION
  Report Type: Spontaneous
  Country: US (occurrence: None)
  Receive Date: 20130201
  Receipt Date: 20130201
  Transmission Date: 20140127
  Serious: Yes (Other)
  Sender: FDA-Public Use
  Company Number: DKLU1088496

PATIENT
  Age: 5 Year
  Sex: Male

DRUGS (1)
  1. SABRIL (TABLET) (SABRIL) (VIGABATRIN) (500 MG, TABLET) [Suspect]
     Indication: INFANTILE SPASMS
     Route: 048

REACTIONS (2)
  - Optic nerve disorder [None]
  - Visual impairment [None]
